FAERS Safety Report 6805967-X (Version None)
Quarter: 2010Q2

REPORT INFORMATION
  Report Type: 
  Country: None (occurrence: None)
  Receive Date: 20100629
  Receipt Date: 20080205
  Transmission Date: 20101027
  Serious: No
  Sender: FDA-Public Use
  Company Number: US-PFIZER INC-2007099177

PATIENT
  Sex: Male
  Weight: 62.7 kg

DRUGS (7)
  1. VIAGRA [Suspect]
  2. ALL OTHER THERAPEUTIC PRODUCTS [Suspect]
  3. HUMALOG [Concomitant]
  4. ANDROGEL [Concomitant]
  5. ANTIDIARRHOEAL MICROORGANISMS [Concomitant]
  6. VARIOUS ALIMENTARY TRACT + METABOLISM PRODUCT [Concomitant]
  7. OMEPRAZOLE [Concomitant]

REACTIONS (3)
  - DRUG EFFECT DECREASED [None]
  - ECCHYMOSIS [None]
  - FLUSHING [None]
